FAERS Safety Report 7880246-0 (Version None)
Quarter: 2011Q4

REPORT INFORMATION
  Report Type: 
  Country: None (occurrence: None)
  Receive Date: 20111101
  Receipt Date: 20111028
  Transmission Date: 20120403
  Serious: Yes (Other)
  Sender: FDA-Public Use
  Company Number: US-PFIZER INC-2011264350

PATIENT
  Sex: Male
  Weight: 108.84 kg

DRUGS (12)
  1. NEURONTIN [Suspect]
     Indication: RESTLESS LEGS SYNDROME
     Dosage: 300 MG, 1X/DAY
     Route: 048
     Dates: start: 20110501, end: 20111024
  2. QVAR 40 [Concomitant]
     Indication: ASTHMA
     Dosage: UNK
  3. FUROSEMIDE [Concomitant]
     Dosage: UNK
  4. MAGNESIUM [Concomitant]
     Dosage: UNK
  5. GLIMEPIRIDE [Concomitant]
     Indication: DIABETES MELLITUS
     Dosage: 4 MG
  6. SINGULAIR [Concomitant]
     Indication: ASTHMA
     Dosage: UNK
  7. ALBUTEROL [Concomitant]
     Indication: ASTHMA
     Dosage: UNK
  8. KLOR-CON [Concomitant]
     Dosage: UNK
  9. METFORMIN [Concomitant]
     Indication: DIABETES MELLITUS
     Dosage: UNK
  10. LIPITOR [Concomitant]
     Indication: BLOOD CHOLESTEROL INCREASED
     Dosage: UNK
  11. COMBIVENT [Concomitant]
     Indication: ASTHMA
     Dosage: UNK
  12. ATENOLOL [Concomitant]
     Indication: HYPERTENSION
     Dosage: UNK

REACTIONS (1)
  - DIPLOPIA [None]
